FAERS Safety Report 14088412 (Version 5)
Quarter: 2018Q3

REPORT INFORMATION
  Report Type: Spontaneous
  Country: US (occurrence: US)
  Receive Date: 20171013
  Receipt Date: 20180911
  Transmission Date: 20181010
  Serious: Yes (Death, Hospitalization)
  Sender: FDA-Public Use
  Company Number: US-ACTELION-A-US2017-160879

PATIENT
  Age: 79 Year
  Sex: Female

DRUGS (1)
  1. OPSUMIT [Suspect]
     Active Substance: MACITENTAN
     Indication: PULMONARY ARTERIAL HYPERTENSION
     Dosage: 10 MG, QD
     Route: 048
     Dates: start: 20150515

REACTIONS (6)
  - Peripheral swelling [Not Recovered/Not Resolved]
  - Death [Fatal]
  - Hip fracture [Unknown]
  - Fall [Unknown]
  - Pulmonary hypertension [Unknown]
  - Dyspnoea [Unknown]
